FAERS Safety Report 23306289 (Version 1)
Quarter: 2023Q4

REPORT INFORMATION
  Report Type: Spontaneous
  Country: US (occurrence: US)
  Receive Date: 20231218
  Receipt Date: 20231218
  Transmission Date: 20240109
  Serious: No
  Sender: FDA-Public Use
  Company Number: US-BEIGENE-BGN-2023-014981

PATIENT

DRUGS (2)
  1. BRUKINSA [Suspect]
     Active Substance: ZANUBRUTINIB
     Indication: Chronic lymphocytic leukaemia
     Dosage: 160 MILLIGRAM, BID
  2. BRUKINSA [Suspect]
     Active Substance: ZANUBRUTINIB
     Dosage: 160 MILLIGRAM, QD

REACTIONS (5)
  - Skin ulcer haemorrhage [Recovered/Resolved]
  - Mouth ulceration [Recovered/Resolved]
  - Mouth haemorrhage [Recovered/Resolved]
  - Blood blister [Recovered/Resolved]
  - Oral blood blister [Recovered/Resolved]
